FAERS Safety Report 4576922-8 (Version None)
Quarter: 2005Q1

REPORT INFORMATION
  Report Type: 
  Country: None (occurrence: None)
  Receive Date: 20050208
  Receipt Date: 20050126
  Transmission Date: 20050727
  Serious: Yes (Death)
  Sender: FDA-Public Use
  Company Number: USA-2003-0010191

PATIENT
  Age: 43 Year
  Sex: Female

DRUGS (4)
  1. HYDROMORPHONE HCL [Suspect]
  2. HYDROCODONE BITARTRATE [Suspect]
     Dosage: MG
  3. ACETAMINOPHEN [Suspect]
     Dosage: MG
  4. CARISOPRODOL [Suspect]
     Dosage: MG

REACTIONS (3)
  - ACCIDENTAL DEATH [None]
  - ATHEROSCLEROSIS [None]
  - MULTIPLE DRUG OVERDOSE [None]
